FAERS Safety Report 9167424 (Version 1)
Quarter: 2013Q1

REPORT INFORMATION
  Report Type: Spontaneous
  Country: US (occurrence: None)
  Receive Date: 20130304
  Receipt Date: 20130304
  Transmission Date: 20140127
  Serious: Yes (Hospitalization, Other)
  Sender: FDA-Public Use
  Company Number: 2013P1002574

PATIENT
  Age: 65 Year
  Sex: Female

DRUGS (2)
  1. PROMETHAZINE [Suspect]
     Indication: NAUSEA
     Dosage: 25 MG BID-TID
  2. DIPHENHYDRAMINE [Suspect]
     Indication: DYSTONIA
     Route: 042

REACTIONS (5)
  - Restless legs syndrome [None]
  - Pain in extremity [None]
  - Paraesthesia [None]
  - Dystonia [None]
  - Discomfort [None]
